FAERS Safety Report 6526990-9 (Version None)
Quarter: 2010Q1

REPORT INFORMATION
  Report Type: 
  Country: None (occurrence: None)
  Receive Date: 20100105
  Receipt Date: 20091224
  Transmission Date: 20100710
  Serious: Yes (Hospitalization)
  Sender: FDA-Public Use
  Company Number: US-PFIZER INC-2009314376

PATIENT
  Sex: Male
  Weight: 103.9 kg

DRUGS (6)
  1. SUNITINIB MALATE [Suspect]
     Indication: GLIOBLASTOMA
     Dosage: 12.5 MG, ONCE EVERY EVENING
     Dates: start: 20091118, end: 20091204
  2. SUNITINIB MALATE [Suspect]
     Dosage: 25 MG, ONCE EVERY EVENING
     Dates: start: 20091118, end: 20091204
  3. DECADRON [Concomitant]
     Dosage: 1 MG, 1X/DAY
  4. KEPPRA [Concomitant]
     Dosage: 500 MG, 2X/DAY
  5. ATIVAN [Concomitant]
     Dosage: 0.5 MG, AS NEEDED
  6. PROTONIX [Concomitant]
     Dosage: 40 MG, 2X/DAY

REACTIONS (2)
  - HYPOTENSION [None]
  - LUNG INFECTION [None]
